FAERS Safety Report 6112177-0 (Version None)
Quarter: 2009Q1

REPORT INFORMATION
  Report Type: 
  Country: None (occurrence: None)
  Receive Date: 20090310
  Receipt Date: 20090224
  Transmission Date: 20090719
  Serious: No
  Sender: FDA-Public Use
  Company Number: 203599

PATIENT
  Age: 56 Year
  Sex: Female
  Weight: 68 kg

DRUGS (2)
  1. DOBUTAMINE HCL        INJ USP (DOBUTAMINE) [Suspect]
     Indication: CARDIAC STRESS TEST
     Dosage: 30 MCG, CONTINUOUS, INTRAVENOUS
     Route: 042
     Dates: start: 20090220, end: 20090220
  2. SODIUM CHLORIDE [Concomitant]

REACTIONS (4)
  - AGITATION [None]
  - FLANK PAIN [None]
  - HYPERHIDROSIS [None]
  - HYPERTENSION [None]
